FAERS Safety Report 20048920 (Version 1)
Quarter: 2021Q4

REPORT INFORMATION
  Report Type: Spontaneous
  Country: JP (occurrence: JP)
  Receive Date: 20211109
  Receipt Date: 20211109
  Transmission Date: 20220303
  Serious: Yes (Other)
  Sender: FDA-Public Use
  Company Number: JP-TAKEDA-2021TJP114289

PATIENT
  Sex: Male

DRUGS (1)
  1. LEUPROLIDE ACETATE [Suspect]
     Active Substance: LEUPROLIDE ACETATE
     Indication: Prostate cancer
     Dosage: 11.25 MILLIGRAM, Q3MONTHS
     Route: 065

REACTIONS (9)
  - Arrhythmia [Unknown]
  - Dizziness postural [Unknown]
  - Thought blocking [Unknown]
  - Condition aggravated [Unknown]
  - Feeling hot [Unknown]
  - Bone pain [Unknown]
  - Back pain [Unknown]
  - Dizziness [Unknown]
  - Hot flush [Unknown]
